FAERS Safety Report 5067395-X (Version None)
Quarter: 2006Q3

REPORT INFORMATION
  Report Type: 
  Country: None (occurrence: None)
  Receive Date: 20060727
  Receipt Date: 20060712
  Transmission Date: 20061208
  Serious: Yes (Other)
  Sender: FDA-Public Use
  Company Number: 2006RR-03014

PATIENT
  Age: 73 Year
  Sex: Female

DRUGS (5)
  1. IBUPROFEN [Suspect]
     Indication: PAIN
     Dosage: 400 MG, TID, ORAL
     Route: 048
     Dates: start: 20060508, end: 20060522
  2. OMEPRAZOLE [Suspect]
     Indication: PROPHYLAXIS AGAINST GASTROINTESTINAL ULCER
     Dosage: 20 G, QD, ORAL
     Route: 048
     Dates: start: 20060511, end: 20060521
  3. CITALOPRAM TABLET (CITALOPRAM) TABLET [Concomitant]
  4. PARACETAMOL (PARACETAMOL) TABET [Concomitant]
  5. PROCHORPERAZINE [Concomitant]

REACTIONS (3)
  - ALANINE AMINOTRANSFERASE INCREASED [None]
  - ASPARTATE AMINOTRANSFERASE INCREASED [None]
  - GAMMA-GLUTAMYLTRANSFERASE INCREASED [None]
